FAERS Safety Report 9103583 (Version 1)
Quarter: 2013Q1

REPORT INFORMATION
  Report Type: Spontaneous
  Country: GB (occurrence: GB)
  Receive Date: 20130218
  Receipt Date: 20130218
  Transmission Date: 20140127
  Serious: Yes (Other)
  Sender: FDA-Public Use
  Company Number: GB-GLAXOSMITHKLINE-B0867401A

PATIENT
  Age: 40 Year
  Sex: Female
  Weight: 93.43 kg

DRUGS (1)
  1. SEROXAT [Suspect]
     Indication: ANXIETY
     Route: 048
     Dates: start: 199508, end: 2000

REACTIONS (11)
  - Colitis ulcerative [Unknown]
  - Aggression [Unknown]
  - Crying [Unknown]
  - Insomnia [Unknown]
  - Headache [Unknown]
  - Malaise [Unknown]
  - Abnormal dreams [Unknown]
  - Weight increased [Unknown]
  - Arthralgia [Unknown]
  - Pain [Unknown]
  - Withdrawal syndrome [Unknown]
